FAERS Safety Report 8776720 (Version 1)
Quarter: 2012Q4

REPORT INFORMATION
  Report Type: 
  Country: GB (occurrence: GB)
  Receive Date: 20120911
  Receipt Date: 20120911
  Transmission Date: 20130627
  Serious: Yes (Other)
  Sender: FDA-Public Use
  Company Number: GB-ELI_LILLY_AND_COMPANY-GB201209000091

PATIENT
  Age: 70 Year
  Sex: Female

DRUGS (3)
  1. DULOXETINE HYDROCHLORIDE [Suspect]
     Indication: NEURALGIA
     Dosage: 20 mg, qd
     Route: 048
     Dates: start: 20120614
  2. AMLODIPINE BESILATE [Concomitant]
     Dosage: UNK, unknown
  3. BENDROFLUMETHIAZIDE [Concomitant]
     Dosage: UNK, unknown

REACTIONS (6)
  - Head discomfort [Not Recovered/Not Resolved]
  - Hypotension [Not Recovered/Not Resolved]
  - Pulse abnormal [Unknown]
  - Muscle spasms [Not Recovered/Not Resolved]
  - Tachyarrhythmia [Not Recovered/Not Resolved]
  - Off label use [Unknown]
